FAERS Safety Report 6779013-0 (Version None)
Quarter: 2010Q2

REPORT INFORMATION
  Report Type: 
  Country: None (occurrence: None)
  Receive Date: 20100618
  Receipt Date: 20100609
  Transmission Date: 20101027
  Serious: Yes (Other)
  Sender: FDA-Public Use
  Company Number: DE-PFIZER INC-2010074227

PATIENT
  Age: 76 Year
  Sex: Male

DRUGS (1)
  1. ATARAX [Suspect]

REACTIONS (2)
  - CONFUSIONAL STATE [None]
  - HYPERPARATHYROIDISM [None]
